FAERS Safety Report 7237203-7 (Version None)
Quarter: 2011Q1

REPORT INFORMATION
  Report Type: 
  Country: None (occurrence: None)
  Receive Date: 20110111
  Receipt Date: 20101228
  Transmission Date: 20110831
  Serious: Yes (Other)
  Sender: FDA-Public Use
  Company Number: DSA_44589_2010

PATIENT
  Age: 58 Year
  Sex: Male

DRUGS (3)
  1. ENALAPRIL MALEATE [Suspect]
     Indication: HYPERTENSION
     Dosage: (20 MG QD ORAL) ; (20 MG QD ORAL)
     Route: 048
     Dates: start: 20101130
  2. ENALAPRIL MALEATE [Suspect]
     Indication: HYPERTENSION
     Dosage: (20 MG QD ORAL) ; (20 MG QD ORAL)
     Route: 048
     Dates: start: 20000101, end: 20101130
  3. ASPIRIN [Concomitant]

REACTIONS (5)
  - DIZZINESS [None]
  - PRODUCT QUALITY ISSUE [None]
  - BLOOD PRESSURE INCREASED [None]
  - HEADACHE [None]
  - NECK PAIN [None]
